FAERS Safety Report 7410766-4 (Version None)
Quarter: 2011Q1

REPORT INFORMATION
  Report Type: 
  Country: None (occurrence: None)
  Receive Date: 20110302
  Receipt Date: 20100820
  Transmission Date: 20110831
  Serious: Yes (Hospitalization, Other)
  Sender: FDA-Public Use
  Company Number: 163-21880-10030849

PATIENT
  Age: 74 Year
  Sex: Female

DRUGS (3)
  1. REVLIMID [Suspect]
     Indication: LYMPHOPROLIFERATIVE DISORDER
     Dosage: 10 MG, DAILY X 21 DAYS, PO
     Route: 048
     Dates: start: 20090811, end: 20100701
  2. COUMADIN [Concomitant]
  3. HEPARIN [Concomitant]

REACTIONS (2)
  - RECTAL NEOPLASM [None]
  - POST PROCEDURAL COMPLICATION [None]
